FAERS Safety Report 19452507 (Version 2)
Quarter: 2022Q2

REPORT INFORMATION
  Report Type: Spontaneous
  Country: US (occurrence: US)
  Receive Date: 20210623
  Receipt Date: 20220410
  Transmission Date: 20220721
  Serious: No
  Sender: FDA-Public Use
  Company Number: US-JNJFOC-20210642739

PATIENT
  Sex: Male

DRUGS (2)
  1. IMODIUM [Suspect]
     Active Substance: LOPERAMIDE HYDROCHLORIDE
     Indication: Product used for unknown indication
     Route: 065
  2. ESBRIET [Concomitant]
     Active Substance: PIRFENIDONE
     Indication: Product used for unknown indication
     Route: 065

REACTIONS (6)
  - Diarrhoea [Unknown]
  - Vomiting [Unknown]
  - Lethargy [Unknown]
  - Depression [Unknown]
  - Pain [Unknown]
  - Abdominal pain upper [Unknown]
